FAERS Safety Report 8578165 (Version 6)
Quarter: 2014Q3

REPORT INFORMATION
  Report Type: Spontaneous
  Country: US (occurrence: None)
  Receive Date: 20120521
  Receipt Date: 20140729
  Transmission Date: 20150326
  Serious: Yes (Other)
  Sender: FDA-Public Use
  Company Number: ADR-2012-00904

PATIENT
  Sex: Female

DRUGS (2)
  1. LIORESAL [Suspect]
     Active Substance: BACLOFEN
     Indication: MUSCLE SPASTICITY
     Dosage: 845 MCG/DAY?
     Route: 037
  2. ORAL BACLOFEN [Suspect]
     Active Substance: BACLOFEN
     Indication: MUSCLE SPASTICITY
     Dosage: 10 MG TABLET X 6/DAY

REACTIONS (15)
  - Oedema [None]
  - Medical device discomfort [None]
  - Muscle spasticity [None]
  - Implant site scar [None]
  - Injury [None]
  - Weight fluctuation [None]
  - Implant site pain [None]
  - Extremity contracture [None]
  - Diplegia [None]
  - Hypertonia [None]
  - Medical device complication [None]
  - Device dislocation [None]
  - Device extrusion [None]
  - Abasia [None]
  - Skin disorder [None]
